FAERS Safety Report 12726845 (Version 1)
Quarter: 2016Q3

REPORT INFORMATION
  Report Type: Spontaneous
  Country: SE (occurrence: SE)
  Receive Date: 20160908
  Receipt Date: 20160908
  Transmission Date: 20161109
  Serious: Yes (Hospitalization)
  Sender: FDA-Public Use
  Company Number: SE-ASTRAZENECA-2016SE94601

PATIENT
  Age: 69 Year
  Sex: Female

DRUGS (22)
  1. ATENOLOL. [Concomitant]
     Active Substance: ATENOLOL
  2. BRUFEN [Concomitant]
     Active Substance: IBUPROFEN
  3. FICORTRIL [Concomitant]
  4. FUCIDIN [Concomitant]
     Active Substance: FUSIDIC ACID
  5. PANODIL [Concomitant]
     Active Substance: ACETAMINOPHEN
  6. IPREN [Concomitant]
     Active Substance: IBUPROFEN
  7. ATARAX [Concomitant]
     Active Substance: HYDROXYZINE\HYDROXYZINE HYDROCHLORIDE
  8. LOCOID [Concomitant]
     Active Substance: HYDROCORTISONE BUTYRATE
  9. PROPYLESS [Concomitant]
  10. HYDROKORTISON [Concomitant]
  11. CETIRIZINE [Concomitant]
     Active Substance: CETIRIZINE HYDROCHLORIDE
  12. CHLOROMYCETIN [Concomitant]
     Active Substance: CHLORAMPHENICOL
  13. DIPRODERM [Concomitant]
     Active Substance: BETAMETHASONE DIPROPIONATE
  14. BEHEPAN [Concomitant]
     Active Substance: HYDROXOCOBALAMIN
  15. DALACIN [Concomitant]
     Active Substance: CLINDAMYCIN\CLINDAMYCIN PHOSPHATE
  16. VISCOTEARS [Concomitant]
     Active Substance: CARBOMER
  17. METHOTREXATE. [Concomitant]
     Active Substance: METHOTREXATE
  18. MYCOSTATIN [Concomitant]
     Active Substance: NYSTATIN
  19. IRESSA [Suspect]
     Active Substance: GEFITINIB
     Indication: METASTASES TO THORAX
     Route: 048
     Dates: start: 20160229
  20. LOPERAMIDE [Concomitant]
     Active Substance: LOPERAMIDE
  21. HEXIDENT [Concomitant]
  22. RANITIDINE. [Concomitant]
     Active Substance: RANITIDINE

REACTIONS (3)
  - Beta haemolytic streptococcal infection [Unknown]
  - Arthritis bacterial [Not Recovered/Not Resolved]
  - Erysipelas [Not Recovered/Not Resolved]

NARRATIVE: CASE EVENT DATE: 20160810
